FAERS Safety Report 7719107-6 (Version None)
Quarter: 2011Q3

REPORT INFORMATION
  Report Type: 
  Country: None (occurrence: None)
  Receive Date: 20110830
  Receipt Date: 20110818
  Transmission Date: 20111222
  Serious: Yes (Disabling)
  Sender: FDA-Public Use
  Company Number: JP-SANOFI-AVENTIS-2011SA054031

PATIENT
  Age: 58 Year
  Sex: Male
  Weight: 54.7 kg

DRUGS (9)
  1. HEPARIN [Concomitant]
  2. PRAVASTATIN SODIUM [Concomitant]
     Route: 048
  3. FAMOTIDINE [Concomitant]
     Route: 048
  4. PLAVIX [Suspect]
     Route: 065
     Dates: start: 20100428
  5. PLAVIX [Suspect]
     Route: 065
     Dates: start: 20100429, end: 20100621
  6. CARVEDILOL [Concomitant]
     Route: 048
  7. WARFARIN SODIUM [Concomitant]
     Route: 048
  8. ASPIRIN [Concomitant]
     Route: 048
     Dates: start: 20100428, end: 20100502
  9. DIOVAN [Concomitant]
     Route: 048

REACTIONS (1)
  - SPINAL MUSCULAR ATROPHY [None]
